FAERS Safety Report 8561934-X (Version None)
Quarter: 2012Q3

REPORT INFORMATION
  Report Type: 
  Country: None (occurrence: None)
  Receive Date: 20120802
  Receipt Date: 20120725
  Transmission Date: 20120928
  Serious: Yes (Death)
  Sender: FDA-Public Use
  Company Number: JP-BAXTER-2012BAX012891

PATIENT
  Sex: Male
  Weight: 67 kg

DRUGS (1)
  1. FEIBA [Suspect]
     Indication: PROCOAGULANT THERAPY
     Route: 042
     Dates: start: 20120724, end: 20120724

REACTIONS (1)
  - DEATH [None]
